FAERS Safety Report 10249293 (Version 1)
Quarter: 2014Q2

REPORT INFORMATION
  Report Type: Spontaneous
  Country: US (occurrence: US)
  Receive Date: 20140620
  Receipt Date: 20140620
  Transmission Date: 20141212
  Serious: Yes (Hospitalization)
  Sender: FDA-Public Use
  Company Number: US-ELI_LILLY_AND_COMPANY-US201406003114

PATIENT
  Age: 76 Year
  Sex: Male
  Weight: 61.2 kg

DRUGS (8)
  1. CYMBALTA [Suspect]
     Indication: DEPRESSION
     Dosage: 30 MG, QD
     Route: 048
     Dates: start: 20100423, end: 20100921
  2. AXITINIB [Interacting]
     Indication: RENAL CANCER METASTATIC
     Dosage: 5 MG, BID
     Route: 048
     Dates: start: 20100712, end: 20100920
  3. PLACEBO [Suspect]
     Indication: RENAL CANCER METASTATIC
     Dosage: UNK, BID
     Route: 048
     Dates: start: 20100810, end: 20100920
  4. ASPIRIN [Concomitant]
     Dosage: UNK, QD
  5. MIRALAX                            /00754501/ [Concomitant]
     Dosage: UNK, PRN
     Route: 048
  6. DOCUSATE SODIUM [Concomitant]
     Dosage: UNK, QD
     Route: 048
  7. SENNA                              /00142201/ [Concomitant]
     Dosage: 8.5 MG, QD
     Route: 048
  8. LISINOPRIL [Concomitant]
     Dosage: 2.5 MG, QD
     Route: 048

REACTIONS (3)
  - Delirium [Recovered/Resolved]
  - Confusional state [Unknown]
  - Drug interaction [Unknown]
